FAERS Safety Report 23571977 (Version 1)
Quarter: 2024Q1

REPORT INFORMATION
  Report Type: Spontaneous
  Country: US (occurrence: US)
  Receive Date: 20240227
  Receipt Date: 20240227
  Transmission Date: 20240409
  Serious: No
  Sender: FDA-Public Use
  Company Number: US-SA-SAC20240222000038

PATIENT
  Sex: Female
  Weight: 88.45 kg

DRUGS (27)
  1. DUPIXENT [Suspect]
     Active Substance: DUPILUMAB
     Indication: Nasal polyps
     Dosage: 300 MG, QOW
     Route: 058
     Dates: start: 202305
  2. DUPIXENT [Suspect]
     Active Substance: DUPILUMAB
     Indication: Asthma
  3. PREDNISONE [Concomitant]
     Active Substance: PREDNISONE
     Dosage: UNK
  4. SYNTHROID [Concomitant]
     Active Substance: LEVOTHYROXINE SODIUM
  5. KETOCONAZOLE [Concomitant]
     Active Substance: KETOCONAZOLE
  6. HYDROCHLOROTHIAZIDE\LOSARTAN [Concomitant]
     Active Substance: HYDROCHLOROTHIAZIDE\LOSARTAN
  7. IBUPROFEN [Concomitant]
     Active Substance: IBUPROFEN
  8. OZEMPIC [Concomitant]
     Active Substance: SEMAGLUTIDE
  9. VENTOLIN HFA [Concomitant]
     Active Substance: ALBUTEROL SULFATE
  10. ACETAMINOPHEN [Concomitant]
     Active Substance: ACETAMINOPHEN
  11. SPIRIVA RESPIMAT [Concomitant]
     Active Substance: TIOTROPIUM BROMIDE
  12. MOMETASONE FUROATE [Concomitant]
     Active Substance: MOMETASONE FUROATE
  13. BENZONATATE [Concomitant]
     Active Substance: BENZONATATE
  14. NEILMED SINUS RINSE [Concomitant]
     Active Substance: SODIUM BICARBONATE\SODIUM CHLORIDE
  15. MURO 128 [Concomitant]
     Active Substance: SODIUM CHLORIDE
  16. MINERALS\VITAMINS [Concomitant]
     Active Substance: MINERALS\VITAMINS
  17. MUPIROCIN [Concomitant]
     Active Substance: MUPIROCIN
  18. ACCOLATE [Concomitant]
     Active Substance: ZAFIRLUKAST
  19. SUDAFED PE CONGESTION [Concomitant]
     Active Substance: PHENYLEPHRINE HYDROCHLORIDE
  20. MUCINEX [Concomitant]
     Active Substance: GUAIFENESIN
  21. NAPROXEN [Concomitant]
     Active Substance: NAPROXEN
  22. OLOPATADINE HYDROCHLORIDE [Concomitant]
     Active Substance: OLOPATADINE HYDROCHLORIDE
  23. DULERA [Concomitant]
     Active Substance: FORMOTEROL FUMARATE DIHYDRATE\MOMETASONE FUROATE
  24. ZOCOR [Concomitant]
     Active Substance: SIMVASTATIN
  25. VITAMINS [Concomitant]
     Active Substance: VITAMINS
     Dosage: UNK
  26. MULTIENZYME [Concomitant]
  27. VITAMIN D3 [Concomitant]
     Active Substance: CHOLECALCIFEROL

REACTIONS (1)
  - Hair colour changes [Recovering/Resolving]
